FAERS Safety Report 24011414 (Version 1)
Quarter: 2024Q2

REPORT INFORMATION
  Report Type: Report from Study
  Country: DE (occurrence: DE)
  Receive Date: 20240625
  Receipt Date: 20240625
  Transmission Date: 20240716
  Serious: Yes (Other)
  Sender: FDA-Public Use
  Company Number: DE-JNJFOC-20230420508

PATIENT
  Age: 16 Year
  Sex: Male

DRUGS (3)
  1. REMICADE [Suspect]
     Active Substance: INFLIXIMAB
     Indication: Crohn^s disease
     Route: 040
     Dates: start: 20100120, end: 20110217
  2. REMICADE [Suspect]
     Active Substance: INFLIXIMAB
     Route: 040
     Dates: start: 20110414, end: 20110414
  3. REMICADE [Suspect]
     Active Substance: INFLIXIMAB
     Route: 040
     Dates: start: 20110616, end: 20120604

REACTIONS (3)
  - Thrombocytopenia [Recovered/Resolved]
  - Iron deficiency [Recovered/Resolved]
  - Short stature [Recovered/Resolved]

NARRATIVE: CASE EVENT DATE: 20110414
